FAERS Safety Report 23429642 (Version 2)
Quarter: 2024Q1

REPORT INFORMATION
  Report Type: Spontaneous
  Country: US (occurrence: US)
  Receive Date: 20240122
  Receipt Date: 20240201
  Transmission Date: 20240409
  Serious: Yes (Other)
  Sender: FDA-Public Use
  Company Number: US-PFIZER INC-2020064204

PATIENT
  Age: 63 Year
  Sex: Female
  Weight: 80.74 kg

DRUGS (2)
  1. PROCARDIA XL [Suspect]
     Active Substance: NIFEDIPINE
     Indication: Hypertension
     Dosage: 30 MG, 2X/DAY
     Route: 048
  2. PROCARDIA XL [Suspect]
     Active Substance: NIFEDIPINE
     Dosage: FOR TWO WEEKS
     Dates: start: 2008

REACTIONS (5)
  - Breast conserving surgery [Recovered/Resolved]
  - Headache [Unknown]
  - Weight decreased [Unknown]
  - Hypotension [Recovered/Resolved]
  - Condition aggravated [Recovered/Resolved]
